FAERS Safety Report 25680933 (Version 1)
Quarter: 2025Q3

REPORT INFORMATION
  Report Type: Spontaneous
  Country: EU (occurrence: EU)
  Receive Date: 20250814
  Receipt Date: 20250814
  Transmission Date: 20251020
  Serious: Yes (Hospitalization, Other)
  Sender: AUROBINDO
  Company Number: EU-EMA-DD-20250731-7482827-154010

PATIENT
  Age: 54 Year
  Sex: Male

DRUGS (2)
  1. MYCOPHENOLATE MOFETIL [Suspect]
     Active Substance: MYCOPHENOLATE MOFETIL
     Indication: Immunosuppression
     Dosage: 1440 MILLIGRAM, ONCE A DAY (1440 MG, QD)
     Route: 065
  2. TACROLIMUS [Suspect]
     Active Substance: TACROLIMUS
     Indication: Immunosuppression
     Dosage: 1.5 MILLIGRAM, ONCE A DAY (1.5 MG, QD)
     Route: 065

REACTIONS (5)
  - Alternaria infection [Recovered/Resolved]
  - Skin lesion [Recovered/Resolved]
  - Hyperplasia [Recovered/Resolved]
  - Dermatitis [Recovered/Resolved]
  - Phaeohyphomycosis [Recovered/Resolved]

NARRATIVE: CASE EVENT DATE: 20080101
